FAERS Safety Report 8242796-7 (Version None)
Quarter: 2012Q1

REPORT INFORMATION
  Report Type: 
  Country: None (occurrence: None)
  Receive Date: 20120329
  Receipt Date: 20120320
  Transmission Date: 20120608
  Serious: No
  Sender: FDA-Public Use
  Company Number: US-ASTRAZENECA-2009SE33847

PATIENT
  Age: 42 Year
  Sex: Male
  Weight: 72.6 kg

DRUGS (3)
  1. SYMBICORT [Suspect]
     Dosage: 160 MCG / 4.5 MCG TWO PUFFS AT NIGHT
     Route: 055
     Dates: start: 20091101
  2. ADVAIR DISKUS 100/50 [Concomitant]
  3. SYMBICORT [Suspect]
     Dosage: 160 MCG / 4.5 MCG TWO PUFFS BID
     Route: 055
     Dates: start: 20091101

REACTIONS (3)
  - PRODUCT QUALITY ISSUE [None]
  - PRODUCT PACKAGING QUANTITY ISSUE [None]
  - INTENTIONAL DRUG MISUSE [None]
